FAERS Safety Report 6624951-2 (Version None)
Quarter: 2010Q1

REPORT INFORMATION
  Report Type: 
  Country: None (occurrence: None)
  Receive Date: 20100310
  Receipt Date: 20090918
  Transmission Date: 20100710
  Serious: No
  Sender: FDA-Public Use
  Company Number: US-BIOGENIDEC-2009BI029890

PATIENT
  Age: 61 Year
  Sex: Female

DRUGS (2)
  1. AVONEX [Suspect]
     Indication: MULTIPLE SCLEROSIS
     Route: 030
     Dates: start: 20050803, end: 20051201
  2. AVONEX [Suspect]
     Route: 030
     Dates: start: 20051201

REACTIONS (3)
  - CHILLS [None]
  - GAIT DISTURBANCE [None]
  - SENSATION OF HEAVINESS [None]
